FAERS Safety Report 7537546-3 (Version None)
Quarter: 2011Q2

REPORT INFORMATION
  Report Type: 
  Country: None (occurrence: None)
  Receive Date: 20110609
  Receipt Date: 20070618
  Transmission Date: 20111010
  Serious: Yes (Death)
  Sender: FDA-Public Use
  Company Number: PHNR2007AU00668

PATIENT
  Sex: Female

DRUGS (5)
  1. RISPERIDONE [Suspect]
     Dosage: 2 MG, QHS
  2. CLOZAPINE [Suspect]
     Indication: SCHIZOPHRENIA
     Dosage: 600 MG, UNK
     Route: 048
     Dates: start: 20050909
  3. RANITIDINE [Suspect]
  4. CITALOPRAM HYDROBROMIDE [Suspect]
     Dosage: 40 MG, DAILY
  5. BENZTROPINE MESYLATE [Suspect]
     Dosage: 1 MG, DAILY

REACTIONS (1)
  - CHOKING [None]
